FAERS Safety Report 8463768-3 (Version None)
Quarter: 2012Q2

REPORT INFORMATION
  Report Type: 
  Country: None (occurrence: None)
  Receive Date: 20120625
  Receipt Date: 20120611
  Transmission Date: 20120825
  Serious: Yes (Hospitalization, Other)
  Sender: FDA-Public Use
  Company Number: US-BAYER-2012-060013

PATIENT
  Sex: Female
  Weight: 70.76 kg

DRUGS (14)
  1. XARELTO [Interacting]
     Indication: CEREBROVASCULAR ACCIDENT PROPHYLAXIS
  2. AMLODIPINE [Concomitant]
  3. CARVEDILOL [Concomitant]
  4. MIRALAX [Concomitant]
  5. LOVAZA [Concomitant]
  6. ASPIRIN [Suspect]
     Indication: PRODUCT USED FOR UNKNOWN INDICATION
  7. HYDRALAZINE HYDROCHLORIDE [Concomitant]
  8. LOSARTAN POTASSIUM [Concomitant]
  9. OMEPRAZOLE [Concomitant]
  10. COLECALCIFEROL [Concomitant]
  11. COQ10 [Concomitant]
  12. XARELTO [Interacting]
     Indication: ATRIAL FIBRILLATION
     Dosage: 15 MG, QD
     Route: 048
     Dates: start: 20120321, end: 20120406
  13. AMLODIPINE [Concomitant]
  14. PRAVASTATIN [Concomitant]

REACTIONS (3)
  - TINNITUS [None]
  - ANAEMIA [None]
  - OCCULT BLOOD POSITIVE [None]
